FAERS Safety Report 9662160 (Version 2)
Quarter: 2013Q4

REPORT INFORMATION
  Report Type: Not Available
  Country: US (occurrence: US)
  Receive Date: 20131031
  Receipt Date: 20131031
  Transmission Date: 20140711
  Serious: Yes (Other)
  Sender: FDA-Public Use
  Company Number: US-NAPPMUNDI-USA-2011-0067903

PATIENT
  Age: 41 Year
  Sex: Female
  Weight: 63.04 kg

DRUGS (10)
  1. OXYCONTIN (NDA 22-272) [Suspect]
     Indication: PAIN
     Dosage: 80 MG, QID
     Dates: start: 201010
  2. OXYCONTIN (NDA 22-272) [Suspect]
     Indication: ARTHROPATHY
  3. OXYCONTIN (NDA 22-272) [Suspect]
     Indication: INTERVERTEBRAL DISC DISORDER
  4. OXYCONTIN (NDA 22-272) [Suspect]
     Indication: SPINAL DISORDER
  5. OXYCONTIN (NDA 22-272) [Suspect]
     Indication: PELVIC DEFORMITY
  6. OXYCONTIN (NDA 22-272) [Suspect]
     Indication: ARTHROPATHY
  7. OXYCONTIN (NDA 22-272) [Suspect]
     Indication: SCIATIC NERVE INJURY
  8. OXYCONTIN (NDA 22-272) [Suspect]
     Indication: NERVOUS SYSTEM DISORDER
  9. OXYCONTIN (NDA 22-272) [Suspect]
     Indication: ARTHRITIS
  10. OXYCODONE HCL CR TABLETS (SIMILAR TO NDA 22-272) [Concomitant]
     Dosage: 30 MG, QID

REACTIONS (5)
  - Choking [Not Recovered/Not Resolved]
  - Foreign body [Not Recovered/Not Resolved]
  - Pain [Not Recovered/Not Resolved]
  - Drug effect decreased [Not Recovered/Not Resolved]
  - Drug ineffective [Not Recovered/Not Resolved]
